FAERS Safety Report 8446882-8 (Version None)
Quarter: 2012Q2

REPORT INFORMATION
  Report Type: 
  Country: None (occurrence: None)
  Receive Date: 20120612
  Receipt Date: 20120612
  Transmission Date: 20120825
  Serious: Yes (Life-Threatening, Hospitalization)
  Sender: FDA-Public Use
  Company Number: None

PATIENT
  Age: 59 Year
  Sex: Male
  Weight: 114.8 kg

DRUGS (1)
  1. VANCOMYCIN [Suspect]
     Indication: SURGERY
     Dosage: 1500 MG TID IV
     Route: 042
     Dates: start: 20120525, end: 20120527

REACTIONS (2)
  - DYSPNOEA [None]
  - THROMBOCYTOPENIA [None]
